FAERS Safety Report 19715511 (Version 1)
Quarter: 2021Q3

REPORT INFORMATION
  Report Type: Spontaneous
  Country: PL (occurrence: PL)
  Receive Date: 20210818
  Receipt Date: 20210818
  Transmission Date: 20211014
  Serious: Yes (Other)
  Sender: FDA-Public Use
  Company Number: PL-BAUSCH-BL-2021-027993

PATIENT
  Age: 74 Year
  Sex: Female

DRUGS (2)
  1. XIFAXAN [Suspect]
     Active Substance: RIFAXIMIN
     Indication: DIVERTICULITIS
     Route: 065
     Dates: start: 20210530, end: 20210607
  2. XIFAXAN [Suspect]
     Active Substance: RIFAXIMIN
     Route: 065
     Dates: start: 20210802, end: 20210803

REACTIONS (3)
  - Syncope [Not Recovered/Not Resolved]
  - Prescribed overdose [Unknown]
  - Malaise [Not Recovered/Not Resolved]
